FAERS Safety Report 10447375 (Version 2)
Quarter: 2014Q3

REPORT INFORMATION
  Report Type: Spontaneous
  Country: US (occurrence: US)
  Receive Date: 20140911
  Receipt Date: 20140911
  Transmission Date: 20150326
  Serious: No
  Sender: FDA-Public Use
  Company Number: US-BEH-2010026544

PATIENT
  Age: 34 Year
  Sex: Male

DRUGS (7)
  1. POTASSIUM [Concomitant]
     Active Substance: POTASSIUM
     Dosage: 10 MEQ TABLET BID FOR APPROXIMATELY 1 YEAR
  2. NASONEX [Concomitant]
     Active Substance: MOMETASONE FUROATE
     Dosage: 2 SPRAYS BID FOR APPROXIMATELY 1 YEAR
     Route: 045
  3. MVI [Concomitant]
     Active Substance: VITAMINS
     Dosage: DAILY FOR APPROXIMATELY 1 YEAR
  4. ZEMAIRA [Suspect]
     Active Substance: .ALPHA.1-PROTEINASE INHIBITOR HUMAN
     Route: 042
     Dates: start: 20100831, end: 20100831
  5. ZEMAIRA [Suspect]
     Active Substance: .ALPHA.1-PROTEINASE INHIBITOR HUMAN
     Indication: ALPHA-1 ANTI-TRYPSIN DEFICIENCY
     Dosage: 60 MG/KG +/- 10% SINCE ??-OCT-2010
     Route: 042
  6. ZEMAIRA [Suspect]
     Active Substance: .ALPHA.1-PROTEINASE INHIBITOR HUMAN
     Dosage: 973 MG VIAL
     Route: 042
  7. ALLEGRA [Concomitant]
     Active Substance: FEXOFENADINE HYDROCHLORIDE
     Dosage: 180 MG TABLET DAILY FOR APPROXIMATEKY 1 YEAR
     Route: 048

REACTIONS (5)
  - Headache [Recovered/Resolved]
  - Headache [Recovered/Resolved]
  - Rash generalised [Unknown]
  - Nausea [Recovered/Resolved]
  - Dizziness [Recovered/Resolved]

NARRATIVE: CASE EVENT DATE: 20100922
